FAERS Safety Report 24372805 (Version 1)
Quarter: 2024Q3

REPORT INFORMATION
  Report Type: Report from Study
  Country: US (occurrence: US)
  Receive Date: 20240927
  Receipt Date: 20240927
  Transmission Date: 20241016
  Serious: Yes (Other)
  Sender: ABBVIE
  Company Number: US-ABBVIE-5938278

PATIENT
  Sex: Female

DRUGS (2)
  1. RINVOQ [Suspect]
     Active Substance: UPADACITINIB
     Indication: Crohn^s disease
     Dosage: STRENGTH:30MG
     Route: 048
     Dates: start: 202309, end: 2024
  2. RINVOQ [Suspect]
     Active Substance: UPADACITINIB
     Indication: Crohn^s disease
     Dosage: THERAPY APPROXIMATELY 1.5 WEEKS AGO?STRENGTH:30MG
     Route: 048
     Dates: start: 202409

REACTIONS (2)
  - Colon injury [Unknown]
  - Abdominal adhesions [Unknown]
